FAERS Safety Report 15796320 (Version 2)
Quarter: 2019Q1

REPORT INFORMATION
  Report Type: Report from Study
  Country: US (occurrence: US)
  Receive Date: 20190108
  Receipt Date: 20190212
  Transmission Date: 20190417
  Serious: Yes (Other)
  Sender: FDA-Public Use
  Company Number: US-AMGEN-USASP2019001638

PATIENT
  Age: 74 Year
  Sex: Female

DRUGS (1)
  1. ENBREL [Suspect]
     Active Substance: ETANERCEPT
     Indication: RHEUMATOID ARTHRITIS
     Dosage: 50 MG, QWK
     Route: 065

REACTIONS (10)
  - Product dose omission [Unknown]
  - Nervousness [Not Recovered/Not Resolved]
  - Hypoacusis [Unknown]
  - Wrong technique in product usage process [Unknown]
  - Somnolence [Unknown]
  - Grip strength decreased [Unknown]
  - Product storage error [Unknown]
  - Blindness unilateral [Unknown]
  - Surgery [Unknown]
  - Glaucoma [Unknown]

NARRATIVE: CASE EVENT DATE: 20180204
